FAERS Safety Report 14481009 (Version 1)
Quarter: 2018Q1

REPORT INFORMATION
  Report Type: Spontaneous
  Country: US (occurrence: US)
  Receive Date: 20180201
  Receipt Date: 20180201
  Transmission Date: 20180509
  Serious: Yes (Other)
  Sender: FDA-Public Use
  Company Number: None

PATIENT
  Age: 59 Year
  Sex: Female

DRUGS (1)
  1. WARFARIN [Suspect]
     Active Substance: WARFARIN

REACTIONS (7)
  - Fall [None]
  - Arthralgia [None]
  - International normalised ratio increased [None]
  - Platelet count decreased [None]
  - Contusion [None]
  - Haematoma [None]
  - Joint swelling [None]
